FAERS Safety Report 20484675 (Version 1)
Quarter: 2022Q1

REPORT INFORMATION
  Report Type: Spontaneous
  Country: US (occurrence: US)
  Receive Date: 20220217
  Receipt Date: 20220217
  Transmission Date: 20220423
  Serious: No
  Sender: FDA-Public Use
  Company Number: US-BAYER-2022A024375

PATIENT
  Age: 75 Year
  Sex: Female

DRUGS (1)
  1. MIRALAX [Suspect]
     Active Substance: POLYETHYLENE GLYCOL 3350
     Indication: Colonoscopy
     Dosage: 1 DF, QD FOR MORE THEN 7 DAYS
     Route: 048
     Dates: start: 20220216

REACTIONS (2)
  - Off label use [Unknown]
  - Expired product administered [None]

NARRATIVE: CASE EVENT DATE: 20220216
